FAERS Safety Report 22250975 (Version 3)
Quarter: 2023Q2

REPORT INFORMATION
  Report Type: Report from Study
  Country: GB (occurrence: GB)
  Receive Date: 20230425
  Receipt Date: 20230522
  Transmission Date: 20230721
  Serious: Yes (Life-Threatening, Hospitalization, Disabling, Other)
  Sender: FDA-Public Use
  Company Number: GB-MHRA-MED-202304210854211400-DSHWG

PATIENT

DRUGS (8)
  1. LAMOTRIGINE [Suspect]
     Active Substance: LAMOTRIGINE
     Indication: Adverse drug reaction
     Dosage: UNK, MAXIMUM DOSE 250MG PER DAY
     Route: 065
     Dates: start: 20161012, end: 20180606
  2. LACOSAMIDE [Suspect]
     Active Substance: LACOSAMIDE
     Indication: Seizure
     Dosage: 300 MG, QD
     Route: 065
     Dates: start: 20180208, end: 20180811
  3. VALPROATE SODIUM [Suspect]
     Active Substance: VALPROATE SODIUM
     Indication: Adverse drug reaction
     Dosage: 200 MG, QD
     Route: 065
     Dates: start: 20160312, end: 20160429
  4. VALPROATE SODIUM [Suspect]
     Active Substance: VALPROATE SODIUM
     Indication: Seizure
     Dosage: 250 MG, QD
     Route: 065
     Dates: start: 20180612, end: 20200625
  5. VALPROATE SODIUM [Suspect]
     Active Substance: VALPROATE SODIUM
     Indication: Seizure
     Dosage: 1000 MG, QD
     Route: 065
     Dates: start: 20160429, end: 20170423
  6. VALPROATE SODIUM [Suspect]
     Active Substance: VALPROATE SODIUM
     Dosage: UNK, MAXIMUM DOSE 20MG PER DAY
     Route: 065
     Dates: start: 20180609, end: 20190416
  7. VALPROATE SODIUM [Suspect]
     Active Substance: VALPROATE SODIUM
     Dosage: UNK, MAXIMUM DOSE 2000MG PER DAY
     Route: 065
     Dates: start: 20180616, end: 20190101
  8. VALPROATE SODIUM [Suspect]
     Active Substance: VALPROATE SODIUM
     Dosage: UNK,MAX DOSE 1200MG PER DAY
     Route: 065
     Dates: start: 20160429, end: 20160911

REACTIONS (4)
  - Seizure [Recovered/Resolved]
  - Memory impairment [Recovered/Resolved]
  - Fatigue [Recovered/Resolved]
  - Medication error [Unknown]

NARRATIVE: CASE EVENT DATE: 20180812
